FAERS Safety Report 12642589 (Version 1)
Quarter: 2016Q3

REPORT INFORMATION
  Report Type: Spontaneous
  Country: US (occurrence: US)
  Receive Date: 20160810
  Receipt Date: 20160810
  Transmission Date: 20161109
  Serious: No
  Sender: FDA-Public Use
  Company Number: GXBR2016US002306

PATIENT
  Age: 39 Year
  Sex: Female
  Weight: 55.33 kg

DRUGS (9)
  1. OMNITROPE [Suspect]
     Active Substance: SOMATROPIN
     Indication: INFERTILITY
     Dosage: 25 U, QD
     Route: 058
     Dates: start: 20160715, end: 20160719
  2. LEUPROLIDE ACETATE. [Suspect]
     Active Substance: LEUPROLIDE ACETATE
     Dosage: 2 DF, UNK
     Route: 058
     Dates: start: 20160716, end: 20160718
  3. LEUPROLIDE ACETATE. [Suspect]
     Active Substance: LEUPROLIDE ACETATE
     Dosage: 1 DF, QD
     Route: 058
     Dates: start: 20160719, end: 20160719
  4. SUMATRIPTAN. [Concomitant]
     Active Substance: SUMATRIPTAN
     Indication: MIGRAINE
     Dosage: 50 MG, PRN
     Route: 065
  5. MENOPUR [Concomitant]
     Active Substance: FOLLICLE STIMULATING HORMONE BETA POLYPEPTIDE\LUTROPIN ALFA
     Indication: INFERTILITY
     Dosage: 150MG  IU, QD
     Route: 058
     Dates: start: 20160715, end: 20160719
  6. DEXAMETHASONE. [Concomitant]
     Active Substance: DEXAMETHASONE
     Indication: INFERTILITY
     Dosage: 1 MG, QD
     Route: 048
     Dates: start: 20160715, end: 20160719
  7. FLONASE [Concomitant]
     Active Substance: FLUTICASONE PROPIONATE
     Indication: HYPERSENSITIVITY
     Dosage: UNK DF, PRN
     Route: 045
  8. GONAL-F [Concomitant]
     Active Substance: FOLLITROPIN
     Indication: INFERTILITY
     Dosage: 225 IU, QD
     Route: 058
     Dates: start: 20160715, end: 20160719
  9. LEUPROLIDE ACETATE. [Suspect]
     Active Substance: LEUPROLIDE ACETATE
     Indication: INFERTILITY
     Dosage: 1 DF, QD
     Route: 058
     Dates: start: 20160715, end: 20160715

REACTIONS (4)
  - Fatigue [Recovered/Resolved]
  - Myalgia [Recovered/Resolved]
  - Arthralgia [Recovered/Resolved]
  - Overdose [Recovered/Resolved]

NARRATIVE: CASE EVENT DATE: 20160715
